FAERS Safety Report 7865059-8 (Version None)
Quarter: 2011Q4

REPORT INFORMATION
  Report Type: 
  Country: None (occurrence: None)
  Receive Date: 20111028
  Receipt Date: 20101007
  Transmission Date: 20120403
  Serious: No
  Sender: FDA-Public Use
  Company Number: US-GLAXOSMITHKLINE-A0885457A

PATIENT
  Age: 77 Year
  Sex: Male

DRUGS (2)
  1. ADVAIR DISKUS 100/50 [Suspect]
     Indication: BRONCHITIS
     Dosage: 1PUFF TWICE PER DAY
     Route: 055
     Dates: start: 20101004, end: 20101006
  2. UNKNOWN MEDICATION [Concomitant]
     Indication: BRONCHITIS
     Dosage: 1TAB TWICE PER DAY
     Route: 048
     Dates: start: 20101004, end: 20101011

REACTIONS (3)
  - CHILLS [None]
  - TREMOR [None]
  - LETHARGY [None]
